FAERS Safety Report 17183926 (Version 1)
Quarter: 2019Q4

REPORT INFORMATION
  Report Type: Spontaneous
  Country: US (occurrence: US)
  Receive Date: 20191127
  Receipt Date: 20191127
  Transmission Date: 20200122
  Serious: Yes (Hospitalization)
  Sender: FDA-Public Use
  Company Number: None

PATIENT
  Age: 68 Year
  Sex: Female
  Weight: 92.4 kg

DRUGS (3)
  1. DOXORUBICIN HYDROCHLORIDE. [Suspect]
     Active Substance: DOXORUBICIN HYDROCHLORIDE
     Dates: end: 20190830
  2. TAXOL [Suspect]
     Active Substance: PACLITAXEL
  3. CYCLOPHOSPHAMIDE. [Suspect]
     Active Substance: CYCLOPHOSPHAMIDE
     Dates: end: 20190830

REACTIONS (5)
  - Sinus tachycardia [None]
  - Chest discomfort [None]
  - Atrial pressure increased [None]
  - Diastolic dysfunction [None]
  - Dyspnoea [None]

NARRATIVE: CASE EVENT DATE: 20191117
